FAERS Safety Report 25933251 (Version 1)
Quarter: 2025Q4

REPORT INFORMATION
  Report Type: Report from Study
  Country: EU (occurrence: EU)
  Receive Date: 20251017
  Receipt Date: 20251017
  Transmission Date: 20260119
  Serious: Yes (Other)
  Sender: ABBVIE
  Company Number: EU-ABBVIE-6503232

PATIENT

DRUGS (1)
  1. MIRVETUXIMAB SORAVTANSINE-GYNX [Suspect]
     Active Substance: MIRVETUXIMAB SORAVTANSINE-GYNX
     Indication: Ovarian cancer
     Route: 065
     Dates: end: 20251013

REACTIONS (4)
  - Malignant peritoneal neoplasm [Unknown]
  - Ovarian epithelial cancer [Unknown]
  - Fallopian tube cancer [Unknown]
  - Ovarian cancer [Unknown]
